FAERS Safety Report 9936657 (Version 3)
Quarter: 2015Q1

REPORT INFORMATION
  Report Type: Spontaneous
  Country: US (occurrence: US)
  Receive Date: 20140228
  Receipt Date: 20150304
  Transmission Date: 20150721
  Serious: No
  Sender: FDA-Public Use
  Company Number: US-AMGEN-USASP2014007295

PATIENT
  Age: 48 Year
  Sex: Female
  Weight: 110.66 kg

DRUGS (5)
  1. ENBREL [Suspect]
     Active Substance: ETANERCEPT
     Indication: PSORIASIS
     Dosage: 50 MG, QWK
     Route: 058
     Dates: start: 20131215
  2. CALCIPOTRIENE. [Concomitant]
     Active Substance: CALCIPOTRIENE
     Indication: PSORIASIS
     Dosage: UNK UNK, BID
     Route: 061
  3. FISH OIL [Concomitant]
     Active Substance: FISH OIL
     Dosage: 1200 MG, QD
     Route: 048
  4. ECONAZOLE [Concomitant]
     Active Substance: ECONAZOLE
     Indication: PSORIASIS
     Dosage: UNK UNK, BID
     Route: 061
  5. TEMOVATE [Concomitant]
     Active Substance: CLOBETASOL PROPIONATE
     Indication: PSORIASIS
     Dosage: UNK UNK, BID
     Route: 061

REACTIONS (4)
  - Psoriasis [Recovering/Resolving]
  - Injection site pain [Not Recovered/Not Resolved]
  - Injection site irritation [Recovering/Resolving]
  - Skin plaque [Not Recovered/Not Resolved]

NARRATIVE: CASE EVENT DATE: 20131219
